FAERS Safety Report 9852742 (Version 2)
Quarter: 2014Q4

REPORT INFORMATION
  Report Type: Spontaneous
  Country: PL (occurrence: None)
  Receive Date: 20140127
  Receipt Date: 20141118
  Transmission Date: 20150529
  Serious: Yes (Hospitalization)
  Sender: FDA-Public Use
  Company Number: 2014US-77479

PATIENT
  Age: 41 Year
  Sex: Female

DRUGS (8)
  1. IRON SULPHATE [Concomitant]
  2. PANTOPRAZOLE [Suspect]
     Active Substance: PANTOPRAZOLE SODIUM
     Indication: PRODUCT USED FOR UNKNOWN INDICATION
  3. PARACETAMOL/TRAMADOL (PARACETAMOL/TRAMADOL) TABLET [Concomitant]
  4. KETOPROFEN (KETOPROFEN) UNKNOWN [Concomitant]
  5. TOLPERISONE [Suspect]
     Active Substance: TOLPERISONE
  6. DICLOFENAC [Concomitant]
     Active Substance: DICLOFENAC
  7. CALCIUM CARBONATE. [Concomitant]
     Active Substance: CALCIUM CARBONATE
  8. VITAMIN D (VITAMIN D) UNKNOWN [Concomitant]

REACTIONS (7)
  - Coeliac disease [None]
  - Duodenitis [None]
  - Renal cyst [None]
  - Drug ineffective [None]
  - Large intestine polyp [None]
  - Osteomalacia [None]
  - Intestinal villi atrophy [None]
